FAERS Safety Report 23559145 (Version 1)
Quarter: 2024Q1

REPORT INFORMATION
  Report Type: Spontaneous
  Country: HR (occurrence: HR)
  Receive Date: 20240223
  Receipt Date: 20240223
  Transmission Date: 20240410
  Serious: Yes (Life-Threatening, Hospitalization, Other)
  Sender: FDA-Public Use
  Company Number: None

PATIENT
  Age: 27 Year
  Sex: Female
  Weight: 57 kg

DRUGS (1)
  1. PREPIDIL [Suspect]
     Active Substance: DINOPROSTONE
     Indication: Induction of cervix ripening
     Dosage: 0.5 MG, 1X/DAY
     Route: 005
     Dates: start: 20230218, end: 20230218

REACTIONS (2)
  - Disseminated intravascular coagulation [Recovered/Resolved with Sequelae]
  - Premature separation of placenta [Recovered/Resolved with Sequelae]

NARRATIVE: CASE EVENT DATE: 20230218
